FAERS Safety Report 9456213 (Version 1)
Quarter: 2013Q3

REPORT INFORMATION
  Report Type: Spontaneous
  Country: IL (occurrence: None)
  Receive Date: 20130808
  Receipt Date: 20130808
  Transmission Date: 20140515
  Serious: Yes (Hospitalization, Other)
  Sender: FDA-Public Use
  Company Number: 2013/160

PATIENT
  Age: 7 Year
  Sex: Female

DRUGS (3)
  1. VALPROIC [Suspect]
     Indication: EPILEPSY
     Dosage: 200 MG/ML
  2. SULTHIAME [Concomitant]
  3. CLONAZEPAM [Concomitant]

REACTIONS (9)
  - Toxicity to various agents [None]
  - Hypophagia [None]
  - Somnolence [None]
  - Oxygen saturation decreased [None]
  - Respiratory acidosis [None]
  - Thrombocytopenia [None]
  - Hypoproteinaemia [None]
  - Hypoalbuminaemia [None]
  - Drug level increased [None]
